FAERS Safety Report 7103659-3 (Version None)
Quarter: 2010Q4

REPORT INFORMATION
  Report Type: 
  Country: None (occurrence: None)
  Receive Date: 20101115
  Receipt Date: 20091016
  Transmission Date: 20110411
  Serious: No
  Sender: FDA-Public Use
  Company Number: US-KINGPHARMUSA00001-K200901294

PATIENT
  Age: 41 Year
  Sex: Female
  Weight: 55.782 kg

DRUGS (2)
  1. LEVOXYL [Suspect]
     Indication: HYPOTHYROIDISM
     Dosage: 50 MCG, QD
     Route: 048
     Dates: start: 20090901
  2. TYLENOL W/ CODEINE NO. 3 [Concomitant]
     Indication: HYPOTHYROIDISM
     Dosage: UNK
     Dates: start: 20090101

REACTIONS (4)
  - ANAL FISSURE [None]
  - BLOOD THYROID STIMULATING HORMONE DECREASED [None]
  - DYSPEPSIA [None]
  - PERIANAL ERYTHEMA [None]
